FAERS Safety Report 6758806-X (Version None)
Quarter: 2010Q2

REPORT INFORMATION
  Report Type: 
  Country: None (occurrence: None)
  Receive Date: 20100603
  Receipt Date: 20100430
  Transmission Date: 20101027
  Serious: Yes (Other)
  Sender: FDA-Public Use
  Company Number: JP-SOLVAY-00310002806

PATIENT
  Age: 12 Year
  Sex: Male

DRUGS (2)
  1. FLUVOXAMINE MALEATE [Suspect]
     Indication: DRUG USE FOR UNKNOWN INDICATION
     Dosage: 50 MILLIGRAM(S) ORAL, 75 MILLIGRAM(S) ORAL
     Route: 048
  2. RISPERDAL [Concomitant]

REACTIONS (1)
  - CONVULSION [None]
